FAERS Safety Report 18777299 (Version 1)
Quarter: 2021Q1

REPORT INFORMATION
  Report Type: Spontaneous
  Country: CA (occurrence: CA)
  Receive Date: 20210122
  Receipt Date: 20210122
  Transmission Date: 20210419
  Serious: Yes (Death, Other)
  Sender: FDA-Public Use
  Company Number: CA-PURDUE-USA-2020-0197607

PATIENT
  Age: 38 Year
  Sex: Male

DRUGS (4)
  1. OXYCONTIN [Suspect]
     Active Substance: OXYCODONE HYDROCHLORIDE
     Indication: BACK INJURY
     Dosage: 40 MG, UNK
     Route: 048
     Dates: start: 20011119, end: 20061109
  2. OXYCONTIN [Suspect]
     Active Substance: OXYCODONE HYDROCHLORIDE
     Indication: JOINT INJURY
  3. OXY IR [Suspect]
     Active Substance: OXYCODONE HYDROCHLORIDE
     Indication: BACK INJURY
     Dosage: 5 MG, UNK
     Route: 048
  4. OXY IR [Suspect]
     Active Substance: OXYCODONE HYDROCHLORIDE
     Indication: JOINT INJURY

REACTIONS (13)
  - Drug abuse [Unknown]
  - Dizziness [Unknown]
  - Rash pruritic [Unknown]
  - Mood swings [Unknown]
  - Constipation [Unknown]
  - Physical assault [Unknown]
  - Nausea [Unknown]
  - Depression [Unknown]
  - Somnolence [Unknown]
  - Paranoia [Unknown]
  - Drug dependence [Not Recovered/Not Resolved]
  - Completed suicide [Fatal]
  - Hypersomnia [Unknown]

NARRATIVE: CASE EVENT DATE: 20061109
